FAERS Safety Report 9298624 (Version 2)
Quarter: 2014Q3

REPORT INFORMATION
  Report Type: Spontaneous
  Country: US (occurrence: US)
  Receive Date: 20130520
  Receipt Date: 20140814
  Transmission Date: 20150326
  Serious: Yes (Hospitalization, Disabling, Other)
  Sender: FDA-Public Use
  Company Number: US-009507513-1305USA010790

PATIENT
  Sex: Female
  Weight: 79.82 kg

DRUGS (1)
  1. NUVARING [Suspect]
     Active Substance: ETHINYL ESTRADIOL\ETONOGESTREL
     Indication: CONTRACEPTION
     Dosage: UNK
     Route: 067
     Dates: start: 2011

REACTIONS (14)
  - Embolism venous [Unknown]
  - Lymphadenopathy [Unknown]
  - Nasal obstruction [Not Recovered/Not Resolved]
  - Weight decreased [Unknown]
  - Coagulopathy [Not Recovered/Not Resolved]
  - Nasal septal operation [Unknown]
  - Decreased appetite [Unknown]
  - Rash macular [Unknown]
  - Mass excision [Unknown]
  - Pulmonary embolism [Not Recovered/Not Resolved]
  - Lymphadenopathy [Unknown]
  - Neck mass [Unknown]
  - Sinusitis [Not Recovered/Not Resolved]
  - Fatigue [Unknown]

NARRATIVE: CASE EVENT DATE: 201107
